FAERS Safety Report 8201502-2 (Version None)
Quarter: 2012Q1

REPORT INFORMATION
  Report Type: 
  Country: None (occurrence: None)
  Receive Date: 20120307
  Receipt Date: 20120224
  Transmission Date: 20120608
  Serious: Yes (Hospitalization)
  Sender: FDA-Public Use
  Company Number: 2012AP000540

PATIENT
  Age: 84 Year
  Sex: Male

DRUGS (7)
  1. RISPERIDONE [Suspect]
     Indication: PRODUCT USED FOR UNKNOWN INDICATION
     Dosage: 0.5 MG;BID
  2. QUETIAPINE FUMARATE [Concomitant]
     Indication: ABNORMAL BEHAVIOUR
  3. METFORMIN HCL [Concomitant]
  4. IBUPROFEN [Concomitant]
  5. ACETAMINOPHEN [Concomitant]
  6. RAMIPRIL [Concomitant]
  7. LORAZEPAM [Suspect]
     Indication: AGITATION

REACTIONS (5)
  - APHAGIA [None]
  - DRUG INEFFECTIVE [None]
  - CONDITION AGGRAVATED [None]
  - SOMNOLENCE [None]
  - ABNORMAL BEHAVIOUR [None]
